FAERS Safety Report 6663477-7 (Version None)
Quarter: 2010Q1

REPORT INFORMATION
  Report Type: 
  Country: None (occurrence: None)
  Receive Date: 20100330
  Receipt Date: 20100330
  Transmission Date: 20100710
  Serious: Yes (Hospitalization, Other)
  Sender: FDA-Public Use
  Company Number: None

PATIENT
  Age: 36 Year
  Sex: Female

DRUGS (3)
  1. CLOZAPINE [Suspect]
     Indication: PSYCHOTIC DISORDER
     Dosage: 150 MG IN THE AM AND 400 MG HS PO
     Route: 048
     Dates: start: 20091031, end: 20100310
  2. LORAZEPAM [Suspect]
     Indication: AFFECTIVE DISORDER
     Dosage: 1 MG TWICE DAILY PO
     Route: 048
     Dates: start: 20091229, end: 20100114
  3. SEE DETAILED DESCRIPTION [Concomitant]

REACTIONS (18)
  - ABNORMAL BEHAVIOUR [None]
  - AGGRESSION [None]
  - AGITATION [None]
  - ANTIPSYCHOTIC DRUG LEVEL INCREASED [None]
  - CONVULSION [None]
  - GAIT DISTURBANCE [None]
  - HAEMATOCRIT DECREASED [None]
  - HAEMOGLOBIN DECREASED [None]
  - HEAD INJURY [None]
  - JOINT INJURY [None]
  - LACERATION [None]
  - NERVOUS SYSTEM DISORDER [None]
  - PNEUMONIA [None]
  - PULMONARY OEDEMA [None]
  - RED BLOOD CELL COUNT DECREASED [None]
  - REFUSAL OF TREATMENT BY PATIENT [None]
  - SOMNOLENCE [None]
  - VOMITING [None]
